FAERS Safety Report 20564072 (Version 1)
Quarter: 2022Q1

REPORT INFORMATION
  Report Type: Spontaneous
  Country: US (occurrence: US)
  Receive Date: 20220308
  Receipt Date: 20220308
  Transmission Date: 20220424
  Serious: No
  Sender: FDA-Public Use
  Company Number: US-ELI_LILLY_AND_COMPANY-US202203003099

PATIENT
  Sex: Male

DRUGS (1)
  1. GLUCAGON [Suspect]
     Active Substance: GLUCAGON
     Indication: Hypoglycaemia
     Dosage: 1 MG, SINGLE
     Route: 058
     Dates: start: 2015

REACTIONS (2)
  - Cold sweat [Unknown]
  - Hypertension [Unknown]

NARRATIVE: CASE EVENT DATE: 20150101
